FAERS Safety Report 16133642 (Version 1)
Quarter: 2019Q1

REPORT INFORMATION
  Report Type: Spontaneous
  Country: GB (occurrence: GB)
  Receive Date: 20190329
  Receipt Date: 20190329
  Transmission Date: 20190418
  Serious: Yes (Hospitalization)
  Sender: FDA-Public Use
  Company Number: GB-ACCORD-116766

PATIENT
  Age: 72 Year
  Sex: Female
  Weight: 50 kg

DRUGS (6)
  1. MITOMYCIN. [Suspect]
     Active Substance: MITOMYCIN
     Indication: URETERIC CANCER
     Dosage: VIA BLADDER INSTILLATION
     Route: 014
     Dates: start: 20181126, end: 20181211
  2. SIMVASTATIN. [Concomitant]
     Active Substance: SIMVASTATIN
  3. CANDESARTAN. [Concomitant]
     Active Substance: CANDESARTAN
  4. NOVOMIX [Concomitant]
     Active Substance: INSULIN ASPART
     Indication: TYPE 2 DIABETES MELLITUS
  5. ATENOLOL/ATENOLOL HYDROCHLORIDE [Concomitant]
  6. DOXAZOSIN [Concomitant]
     Active Substance: DOXAZOSIN\DOXAZOSIN MESYLATE

REACTIONS (8)
  - Nausea [Unknown]
  - Urosepsis [Not Recovered/Not Resolved]
  - Fatigue [Unknown]
  - Vomiting [Unknown]
  - Chills [Unknown]
  - Malaise [Unknown]
  - Pollakiuria [Unknown]
  - Tremor [Unknown]

NARRATIVE: CASE EVENT DATE: 20181208
